FAERS Safety Report 6733829 (Version 4)
Quarter: 2013Q2

REPORT INFORMATION
  Report Type: Spontaneous
  Country: CH (occurrence: CH)
  Receive Date: 20080822
  Receipt Date: 20130418
  Transmission Date: 20140414
  Serious: Yes (Hospitalization)
  Sender: FDA-Public Use
  Company Number: CH-ABBOTT-08P-151-0471567-00

PATIENT
  Age: 25 Year
  Sex: Female

DRUGS (7)
  1. ADALIMUMAB [Suspect]
     Indication: CROHN^S DISEASE
     Dosage: SINGLE DOSE
     Route: 058
     Dates: start: 20080805, end: 20080805
  2. ADALIMUMAB [Suspect]
     Indication: COLITIS ULCERATIVE
  3. STEROIDS [Suspect]
     Indication: CROHN^S DISEASE
     Dosage: STARTED BEGINNING OF AUG 2008
     Route: 042
     Dates: start: 200808, end: 200808
  4. STEROIDS [Suspect]
     Indication: COLITIS ULCERATIVE
  5. IMUREK [Concomitant]
     Indication: CROHN^S DISEASE
     Route: 048
     Dates: start: 200705, end: 20080816
  6. PREDNISONE [Concomitant]
     Indication: CROHN^S DISEASE
     Route: 048
     Dates: start: 200510, end: 20080826
  7. PREDNISOLONE [Concomitant]
     Indication: CROHN^S DISEASE
     Dosage: BETWEEN 10 TO 60 MG

REACTIONS (12)
  - Cardiomyopathy [Recovering/Resolving]
  - Respiratory failure [Recovering/Resolving]
  - Renal failure acute [Recovered/Resolved]
  - Depressed level of consciousness [Unknown]
  - Disorientation [Unknown]
  - Hypotension [None]
  - Pulmonary oedema [None]
  - Sinus tachycardia [None]
  - Confusional state [None]
  - Cardiotoxicity [None]
  - Haemodynamic instability [None]
  - Haemofiltration [None]
